FAERS Safety Report 7791335-3 (Version None)
Quarter: 2011Q4

REPORT INFORMATION
  Report Type: 
  Country: None (occurrence: None)
  Receive Date: 20111003
  Receipt Date: 20110921
  Transmission Date: 20120403
  Serious: No
  Sender: FDA-Public Use
  Company Number: US-BIOGENIDEC-2011BI036385

PATIENT
  Age: 55 Year
  Sex: Female

DRUGS (1)
  1. AVONEX [Suspect]
     Indication: MULTIPLE SCLEROSIS
     Route: 030
     Dates: start: 20110912

REACTIONS (8)
  - EYE DISORDER [None]
  - INJECTION SITE HAEMORRHAGE [None]
  - ANXIETY [None]
  - FEAR [None]
  - FEELING HOT [None]
  - CRYING [None]
  - FEELING COLD [None]
  - INSOMNIA [None]
